FAERS Safety Report 11097719 (Version 1)
Quarter: 2015Q2

REPORT INFORMATION
  Report Type: Report from Study
  Country: CA (occurrence: CA)
  Receive Date: 20150507
  Receipt Date: 20150507
  Transmission Date: 20150821
  Serious: Yes (Hospitalization)
  Sender: FDA-Public Use
  Company Number: PHHY2010CA02046

PATIENT
  Age: 48 Year
  Sex: Male
  Weight: 78.5 kg

DRUGS (2)
  1. SANDOSTATIN LAR DEPOT [Suspect]
     Active Substance: OCTREOTIDE ACETATE
     Dosage: 20 MG, EVERY 3 WEEKS
     Route: 030
     Dates: end: 201504
  2. SANDOSTATIN LAR DEPOT [Suspect]
     Active Substance: OCTREOTIDE ACETATE
     Indication: DIARRHOEA
     Dosage: 20 MG, QMO
     Route: 030
     Dates: start: 20030701

REACTIONS (9)
  - Gastrointestinal motility disorder [Unknown]
  - Androgens abnormal [Unknown]
  - Abdominal pain [Not Recovered/Not Resolved]
  - Influenza [Unknown]
  - Dysuria [Not Recovered/Not Resolved]
  - Off label use [Unknown]
  - Weight decreased [Unknown]
  - Decreased appetite [Recovered/Resolved]
  - Fatigue [Unknown]

NARRATIVE: CASE EVENT DATE: 201406
